FAERS Safety Report 9924781 (Version 1)
Quarter: 2014Q1

REPORT INFORMATION
  Report Type: Spontaneous
  Country: US (occurrence: None)
  Receive Date: 20140224
  Receipt Date: 20140224
  Transmission Date: 20141002
  Serious: Yes (Disabling)
  Sender: FDA-Public Use
  Company Number: None

PATIENT
  Age: 33 Year
  Sex: Female
  Weight: 54.43 kg

DRUGS (1)
  1. TOPIRAMATE [Suspect]
     Indication: MIGRAINE
     Dosage: 3 PILLS ONCE DAILY TAKEN BY MOUTH
     Route: 048
     Dates: start: 20140101, end: 20140219

REACTIONS (5)
  - Visual impairment [None]
  - Hallucination [None]
  - Chromatopsia [None]
  - Vision blurred [None]
  - Tinnitus [None]
